FAERS Safety Report 12699547 (Version 2)
Quarter: 2016Q3

REPORT INFORMATION
  Report Type: Spontaneous
  Country: DE (occurrence: DE)
  Receive Date: 20160830
  Receipt Date: 20160831
  Transmission Date: 20161109
  Serious: Yes (Other)
  Sender: FDA-Public Use
  Company Number: PHHY2016DE117070

PATIENT
  Age: 63 Year
  Sex: Female

DRUGS (2)
  1. CICLOSPORIN [Suspect]
     Active Substance: CYCLOSPORINE
     Indication: IMMUNOSUPPRESSANT DRUG THERAPY
  2. CICLOSPORIN [Suspect]
     Active Substance: CYCLOSPORINE
     Indication: PEMPHIGUS
     Dosage: 7 MG/KG (5-7 MG/KG), UNK
     Route: 065

REACTIONS (4)
  - Cholecystitis chronic [Unknown]
  - Condition aggravated [Unknown]
  - Myopathy [Unknown]
  - Product use issue [Unknown]
